FAERS Safety Report 4702617-3 (Version None)
Quarter: 2005Q2

REPORT INFORMATION
  Report Type: 
  Country: None (occurrence: None)
  Receive Date: 20050629
  Receipt Date: 20050112
  Transmission Date: 20051028
  Serious: Yes (Hospitalization, Other)
  Sender: FDA-Public Use
  Company Number: US-GLAXOSMITHKLINE-A0540331A

PATIENT
  Age: 76 Year
  Sex: Male

DRUGS (9)
  1. ECOTRIN [Suspect]
     Indication: DRUG USE FOR UNKNOWN INDICATION
     Route: 048
     Dates: start: 19740101, end: 20040625
  2. LIPITOR [Concomitant]
  3. MULTI-VITAMIN [Concomitant]
     Indication: VITAMIN SUPPLEMENTATION
  4. BENADRYL [Concomitant]
     Indication: SLEEP DISORDER
  5. MELATONIN [Concomitant]
     Indication: SLEEP DISORDER
  6. CITRACAL [Concomitant]
  7. LISINOPRIL [Concomitant]
  8. CELEBREX [Concomitant]
  9. ANTACID TAB [Concomitant]

REACTIONS (26)
  - ANAEMIA [None]
  - ASTHENIA [None]
  - ATRIAL FLUTTER [None]
  - BRADYCARDIA [None]
  - COUGH [None]
  - DEMENTIA ALZHEIMER'S TYPE [None]
  - DUODENAL ULCER HAEMORRHAGE [None]
  - DYSPEPSIA [None]
  - DYSPNOEA EXERTIONAL [None]
  - EPISTAXIS [None]
  - ERUCTATION [None]
  - FATIGUE [None]
  - FEELING COLD [None]
  - GASTRIC ULCER HAEMORRHAGE [None]
  - GASTRITIS [None]
  - GASTROOESOPHAGEAL REFLUX DISEASE [None]
  - HYPERHIDROSIS [None]
  - HYPOTENSION [None]
  - KNEE ARTHROPLASTY [None]
  - NASAL DISORDER [None]
  - NAUSEA [None]
  - OESOPHAGEAL CANDIDIASIS [None]
  - PALLOR [None]
  - SICK SINUS SYNDROME [None]
  - SLEEP DISORDER [None]
  - TACHYCARDIA [None]
